FAERS Safety Report 16601163 (Version 1)
Quarter: 2019Q3

REPORT INFORMATION
  Report Type: Report from Study
  Country: US (occurrence: US)
  Receive Date: 20190719
  Receipt Date: 20190719
  Transmission Date: 20191004
  Serious: No
  Sender: FDA-Public Use
  Company Number: US-AGIOS-1903US01149

PATIENT

DRUGS (3)
  1. TIBSOVO [Suspect]
     Active Substance: IVOSIDENIB
     Indication: MYELOPROLIFERATIVE NEOPLASM
     Dosage: 250 MILLIGRAM, QD
     Route: 048
     Dates: start: 20190129
  2. TIBSOVO [Suspect]
     Active Substance: IVOSIDENIB
     Dosage: 250 MILLIGRAM, QD
     Route: 048
     Dates: start: 201901
  3. TYLENOL [Concomitant]
     Active Substance: ACETAMINOPHEN
     Indication: PLANTAR FASCIITIS

REACTIONS (1)
  - White blood cell count abnormal [Unknown]
